FAERS Safety Report 8217296-0 (Version None)
Quarter: 2012Q1

REPORT INFORMATION
  Report Type: 
  Country: None (occurrence: None)
  Receive Date: 20120307
  Receipt Date: 20120224
  Transmission Date: 20120608
  Serious: Yes (Other)
  Sender: FDA-Public Use
  Company Number: 1207584

PATIENT
  Sex: Female
  Weight: 64 kg

DRUGS (5)
  1. DOCETAXEL [Suspect]
     Indication: BREAST CANCER
     Dosage: 160 MG MILLIGRAM(S), INTRAVENOUS
     Route: 042
     Dates: start: 20120120, end: 20120220
  2. DEXAMETHASONE [Concomitant]
  3. PREDNISOLONE [Concomitant]
  4. METOCLOPRAMIDE [Concomitant]
  5. GRANISETRON [Concomitant]

REACTIONS (9)
  - DERMATITIS EXFOLIATIVE [None]
  - VOMITING [None]
  - NAUSEA [None]
  - MOUTH INJURY [None]
  - ERYTHEMA [None]
  - BLISTER [None]
  - TONGUE OEDEMA [None]
  - VULVOVAGINAL INJURY [None]
  - DIARRHOEA [None]
